FAERS Safety Report 9716210 (Version 1)
Quarter: 2013Q4

REPORT INFORMATION
  Report Type: Spontaneous
  Country: JP (occurrence: JP)
  Receive Date: 20131127
  Receipt Date: 20131127
  Transmission Date: 20140711
  Serious: Yes (Other)
  Sender: FDA-Public Use
  Company Number: JP-ASTELLAS-2013US012451

PATIENT
  Age: 65 Year
  Sex: Male

DRUGS (2)
  1. TARCEVA [Suspect]
     Indication: LUNG ADENOCARCINOMA
     Dosage: UNK, 1 IN 2 DAYS
     Route: 048
  2. TARCEVA [Suspect]
     Dosage: UNK
     Route: 048

REACTIONS (1)
  - Corneal perforation [Recovering/Resolving]
